FAERS Safety Report 10062064 (Version 1)
Quarter: 2014Q2

REPORT INFORMATION
  Report Type: Spontaneous
  Country: US (occurrence: US)
  Receive Date: 20140407
  Receipt Date: 20140407
  Transmission Date: 20141212
  Serious: No
  Sender: FDA-Public Use
  Company Number: US-BIOGENIDEC-2013BI084696

PATIENT
  Sex: Female

DRUGS (1)
  1. AVONEX [Suspect]
     Indication: MULTIPLE SCLEROSIS
     Route: 030
     Dates: start: 20120921

REACTIONS (4)
  - Memory impairment [Not Recovered/Not Resolved]
  - Mobility decreased [Unknown]
  - Depressed mood [Unknown]
  - Asthenia [Unknown]
